FAERS Safety Report 4372722-2 (Version None)
Quarter: 2004Q2

REPORT INFORMATION
  Report Type: 
  Country: None (occurrence: None)
  Receive Date: 20040603
  Receipt Date: 20040527
  Transmission Date: 20050107
  Serious: Yes (Death)
  Sender: FDA-Public Use
  Company Number: A04200400470

PATIENT
  Age: 76 Year
  Sex: Female

DRUGS (9)
  1. ELOXATIN [Suspect]
     Indication: COLON CANCER METASTATIC
     Route: 041
     Dates: start: 20040101, end: 20040101
  2. ELOXATIN [Suspect]
     Indication: METASTASES TO LIVER
     Route: 041
     Dates: start: 20040101, end: 20040101
  3. ELOXATIN [Suspect]
     Indication: METASTASES TO LUNG
     Route: 041
     Dates: start: 20040101, end: 20040101
  4. (FOLINIC ACID) - SOLUTION - UNIT DOSE : UNKNOWN [Suspect]
     Indication: COLON CANCER METASTATIC
     Route: 041
     Dates: start: 20040101, end: 20040101
  5. (FOLINIC ACID) - SOLUTION - UNIT DOSE : UNKNOWN [Suspect]
     Indication: METASTASES TO LIVER
     Route: 041
     Dates: start: 20040101, end: 20040101
  6. (FOLINIC ACID) - SOLUTION - UNIT DOSE : UNKNOWN [Suspect]
     Indication: METASTASES TO LUNG
     Route: 041
     Dates: start: 20040101, end: 20040101
  7. FLUOROURACIL [Suspect]
     Indication: COLON CANCER METASTATIC
     Route: 041
     Dates: start: 20040101, end: 20040101
  8. FLUOROURACIL [Suspect]
     Indication: METASTASES TO LIVER
     Route: 041
     Dates: start: 20040101, end: 20040101
  9. FLUOROURACIL [Suspect]
     Indication: METASTASES TO LUNG
     Route: 041
     Dates: start: 20040101, end: 20040101

REACTIONS (6)
  - DISSEMINATED INTRAVASCULAR COAGULATION [None]
  - GENERAL PHYSICAL HEALTH DETERIORATION [None]
  - HAEMOLYTIC ANAEMIA [None]
  - JAUNDICE [None]
  - PYREXIA [None]
  - RENAL FAILURE [None]
